FAERS Safety Report 9765391 (Version 1)
Quarter: 2013Q4

REPORT INFORMATION
  Report Type: Spontaneous
  Country: US (occurrence: US)
  Receive Date: 20131217
  Receipt Date: 20131217
  Transmission Date: 20140711
  Serious: No
  Sender: FDA-Public Use
  Company Number: US-GLAXOSMITHKLINE-A1006921A

PATIENT
  Age: 67 Year
  Sex: Male

DRUGS (10)
  1. VOTRIENT [Suspect]
     Indication: RENAL CELL CARCINOMA
     Dosage: 800MG PER DAY
     Route: 048
     Dates: start: 20121120
  2. LISINOPRIL [Concomitant]
  3. ALLOPURINOL [Concomitant]
  4. PRAVASTATIN [Concomitant]
  5. FUROSEMIDE [Concomitant]
  6. WARFARIN [Concomitant]
  7. TEMAZEPAM [Concomitant]
  8. METOPROLOL [Concomitant]
  9. KLOR-CON [Concomitant]
  10. TYLENOL [Concomitant]

REACTIONS (1)
  - Hair colour changes [Not Recovered/Not Resolved]
